FAERS Safety Report 4930089-2 (Version None)
Quarter: 2006Q1

REPORT INFORMATION
  Report Type: 
  Country: None (occurrence: None)
  Receive Date: 20060302
  Receipt Date: 20060220
  Transmission Date: 20060701
  Serious: Yes (Hospitalization, Other)
  Sender: FDA-Public Use
  Company Number: GB-JNJFOC-20060105942

PATIENT
  Sex: Female
  Weight: 133 kg

DRUGS (9)
  1. REMICADE [Suspect]
     Indication: RHEUMATOID ARTHRITIS
     Route: 042
  2. METHOTREXATE [Concomitant]
  3. PREDNISOLONE [Concomitant]
  4. CALCIUM D3 [Concomitant]
  5. CO-CODAMOL [Concomitant]
  6. CO-CODAMOL [Concomitant]
  7. DICLOFENAC [Concomitant]
  8. FOLIC ACID [Concomitant]
  9. TRAMADOL HCL [Concomitant]

REACTIONS (2)
  - CONDITION AGGRAVATED [None]
  - FOLLICULITIS [None]
